FAERS Safety Report 8680941 (Version 3)
Quarter: 2012Q4

REPORT INFORMATION
  Report Type: 
  Country: US (occurrence: US)
  Receive Date: 20120724
  Receipt Date: 20121029
  Transmission Date: 20130627
  Serious: No
  Sender: FDA-Public Use
  Company Number: US-PFIZER INC-2012175782

PATIENT
  Age: 55 Year
  Sex: Female
  Weight: 49.9 kg

DRUGS (6)
  1. ESTRING [Suspect]
     Indication: VULVOVAGINAL ATROPHY
     Dosage: 1 DF (1 vaginal ring), every 3 months
     Route: 067
     Dates: start: 20120702
  2. ESTRING [Suspect]
     Indication: VAGINAL DRYNESS
     Dosage: 2 mg, UNK
     Route: 067
     Dates: start: 20120718, end: 20120718
  3. ESTRING [Suspect]
     Indication: HORMONE REPLACEMENT THERAPY
  4. ESTRACE [Concomitant]
     Dosage: 2 mg, 1x/day
     Route: 048
  5. ESTRADIOL [Concomitant]
     Dosage: 2 mg, UNK
  6. SYNTHROID [Concomitant]
     Dosage: UNK

REACTIONS (1)
  - Vulvovaginal pain [Unknown]
